FAERS Safety Report 5943902-7 (Version None)
Quarter: 2008Q4

REPORT INFORMATION
  Report Type: 
  Country: None (occurrence: None)
  Receive Date: 20081104
  Receipt Date: 20081020
  Transmission Date: 20090506
  Serious: Yes (Other)
  Sender: FDA-Public Use
  Company Number: 08-053

PATIENT
  Age: 52 Year
  Sex: Female
  Weight: 64.4108 kg

DRUGS (8)
  1. CEFEPIME [Suspect]
     Indication: LUNG INFECTION PSEUDOMONAL
     Dosage: 1-2G TWICE DAILY, IV
     Route: 042
     Dates: start: 20081017, end: 20081027
  2. NEURONTIN [Concomitant]
  3. LAMICTAL [Concomitant]
  4. PHENOBARBITAL TAB [Concomitant]
  5. CLONIDINE [Concomitant]
  6. OXYCONTIN [Concomitant]
  7. NORCO [Concomitant]
  8. VALIUM [Concomitant]

REACTIONS (12)
  - ABDOMINAL DISTENSION [None]
  - ABDOMINAL PAIN [None]
  - ARTHRALGIA [None]
  - BURNING SENSATION [None]
  - DIARRHOEA [None]
  - ERYTHEMA [None]
  - JOINT STIFFNESS [None]
  - JOINT SWELLING [None]
  - JOINT WARMTH [None]
  - NAUSEA [None]
  - OEDEMA PERIPHERAL [None]
  - RHABDOMYOLYSIS [None]
